FAERS Safety Report 4701630-X (Version None)
Quarter: 2005Q2

REPORT INFORMATION
  Report Type: 
  Country: None (occurrence: None)
  Receive Date: 20050627
  Receipt Date: 20050614
  Transmission Date: 20051028
  Serious: Yes (Other)
  Sender: FDA-Public Use
  Company Number: 2005088770

PATIENT
  Age: 49 Year
  Sex: Male

DRUGS (1)
  1. XALATAN [Suspect]
     Indication: GLAUCOMA
     Dosage: DAILY, OPHTHALMIC
     Route: 047
     Dates: start: 20040701

REACTIONS (2)
  - PAPILLOEDEMA [None]
  - RETINAL OEDEMA [None]
